FAERS Safety Report 7928367-8 (Version None)
Quarter: 2011Q4

REPORT INFORMATION
  Report Type: 
  Country: None (occurrence: None)
  Receive Date: 20111118
  Receipt Date: 20111110
  Transmission Date: 20120403
  Serious: Yes (Other)
  Sender: FDA-Public Use
  Company Number: PHHY2011TN100281

PATIENT
  Age: 49 Year
  Sex: Male

DRUGS (2)
  1. PEGINTERFERON ALFA-2A [Suspect]
     Indication: HUMAN IMMUNODEFICIENCY VIRUS TRANSMISSION
     Dosage: UNK UKN, UNK
     Dates: start: 20010101
  2. RIBAVIRIN [Suspect]
     Indication: HUMAN IMMUNODEFICIENCY VIRUS TRANSMISSION
     Dosage: UNK UKN, UNK
     Dates: start: 20010101

REACTIONS (7)
  - WEIGHT DECREASED [None]
  - PULMONARY SARCOIDOSIS [None]
  - COUGH [None]
  - CUTANEOUS SARCOIDOSIS [None]
  - SUBCUTANEOUS NODULE [None]
  - FATIGUE [None]
  - DYSPNOEA [None]
